FAERS Safety Report 5476910-3 (Version None)
Quarter: 2007Q3

REPORT INFORMATION
  Report Type: 
  Country: None (occurrence: None)
  Receive Date: 20070912
  Receipt Date: 20070727
  Transmission Date: 20080115
  Serious: No
  Sender: FDA-Public Use
  Company Number: 002#2#2007-00126

PATIENT
  Sex: Female

DRUGS (1)
  1. NEUPRO [Suspect]
     Indication: DRUG USE FOR UNKNOWN INDICATION
     Dosage: 2MG/24H,1 IN 1 D,TRANSDERMAL
     Route: 062
     Dates: start: 20070715

REACTIONS (1)
  - DYSKINESIA [None]
